FAERS Safety Report 14843197 (Version 3)
Quarter: 2018Q2

REPORT INFORMATION
  Report Type: Spontaneous
  Country: US (occurrence: US)
  Receive Date: 20180503
  Receipt Date: 20180515
  Transmission Date: 20180711
  Serious: Yes (Life-Threatening, Hospitalization, Disabling, Other)
  Sender: FDA-Public Use
  Company Number: US-009507513-1804USA010061

PATIENT
  Age: 85 Year
  Sex: Male
  Weight: 85.26 kg

DRUGS (8)
  1. AUGMENTIN [Concomitant]
     Active Substance: AMOXICILLIN\CLAVULANATE POTASSIUM
     Indication: CLOSTRIDIUM DIFFICILE INFECTION
     Dosage: UNK
     Dates: start: 2009
  2. FLUCONAZON [Concomitant]
     Indication: ABSCESS
     Dosage: UNK
     Dates: start: 2009
  3. INVANZ [Suspect]
     Active Substance: ERTAPENEM SODIUM
     Indication: CLOSTRIDIUM DIFFICILE INFECTION
     Dosage: UNK
     Dates: start: 2009
  4. BACTRIM [Concomitant]
     Active Substance: SULFAMETHOXAZOLE\TRIMETHOPRIM
     Indication: CLOSTRIDIUM DIFFICILE INFECTION
     Dosage: UNK
     Dates: start: 2017
  5. FLUCONAZON [Concomitant]
     Dosage: UNK
  6. DIFICID [Suspect]
     Active Substance: FIDAXOMICIN
     Indication: CLOSTRIDIUM DIFFICILE INFECTION
     Dosage: 200 MG, BID
     Route: 048
     Dates: start: 20180425, end: 20180504
  7. INVANZ [Suspect]
     Active Substance: ERTAPENEM SODIUM
     Indication: ABSCESS
     Dosage: UNK
  8. AVELOX [Concomitant]
     Active Substance: MOXIFLOXACIN HYDROCHLORIDE
     Indication: CLOSTRIDIUM DIFFICILE INFECTION
     Dosage: UNK

REACTIONS (8)
  - Weight decreased [Not Recovered/Not Resolved]
  - Coronary artery disease [Recovering/Resolving]
  - Intestinal perforation [Not Recovered/Not Resolved]
  - Clostridium difficile colitis [Recovering/Resolving]
  - Anaemia of chronic disease [Recovering/Resolving]
  - Abscess [Not Recovered/Not Resolved]
  - Clostridium difficile infection [Not Recovered/Not Resolved]
  - Acute kidney injury [Recovering/Resolving]

NARRATIVE: CASE EVENT DATE: 201801
